FAERS Safety Report 16117312 (Version 1)
Quarter: 2019Q1

REPORT INFORMATION
  Report Type: Spontaneous
  Country: US (occurrence: US)
  Receive Date: 20190325
  Receipt Date: 20190325
  Transmission Date: 20190418
  Serious: Yes (Hospitalization)
  Sender: FDA-Public Use
  Company Number: None

PATIENT
  Age: 45 Year
  Sex: Female
  Weight: 85.5 kg

DRUGS (1)
  1. PROGESTERONE/DHEA/TESTOSTERONE CREAM [Suspect]
     Active Substance: PRASTERONE\PROGESTERONE\TESTOSTERONE
     Indication: HORMONE REPLACEMENT THERAPY
     Dosage: ?          QUANTITY:1 ML;?
     Route: 061
     Dates: start: 20190304, end: 20190308

REACTIONS (2)
  - Toxicity to various agents [None]
  - Poisoning [None]

NARRATIVE: CASE EVENT DATE: 20190307
